FAERS Safety Report 7501820-7 (Version None)
Quarter: 2011Q2

REPORT INFORMATION
  Report Type: 
  Country: None (occurrence: None)
  Receive Date: 20110525
  Receipt Date: 20110512
  Transmission Date: 20111010
  Serious: Yes (Other)
  Sender: FDA-Public Use
  Company Number: US-BAYER-201036938NA

PATIENT
  Age: 43 Year
  Sex: Female

DRUGS (2)
  1. YAZ [Suspect]
     Indication: MENORRHAGIA
     Route: 048
  2. YASMIN [Suspect]
     Indication: MENORRHAGIA
     Route: 048

REACTIONS (2)
  - SPLENIC INFARCTION [None]
  - AORTIC THROMBOSIS [None]
